FAERS Safety Report 21209799 (Version 2)
Quarter: 2022Q3

REPORT INFORMATION
  Report Type: Spontaneous
  Country: US (occurrence: None)
  Receive Date: 20220813
  Receipt Date: 20220923
  Transmission Date: 20221027
  Serious: Yes (Life-Threatening, Hospitalization)
  Sender: FDA-Public Use
  Company Number: 2022A283438

PATIENT
  Age: 662 Month
  Sex: Female
  Weight: 84.8 kg

DRUGS (3)
  1. FASENRA [Suspect]
     Active Substance: BENRALIZUMAB
     Indication: Asthma
     Route: 058
     Dates: start: 202205
  2. SYMBICORT [Suspect]
     Active Substance: BUDESONIDE\FORMOTEROL FUMARATE DIHYDRATE
     Indication: Asthma
     Dosage: 160/4.5MCG 2 PUFFS BID
     Route: 055
     Dates: start: 202107
  3. FLUCONAZOLE [Concomitant]
     Active Substance: FLUCONAZOLE

REACTIONS (10)
  - Asthma [Unknown]
  - Cluster headache [Unknown]
  - Candida infection [Unknown]
  - Limb discomfort [Unknown]
  - Visual impairment [Unknown]
  - Nerve injury [Unknown]
  - Dyspnoea [Unknown]
  - Anosmia [Unknown]
  - Ageusia [Unknown]
  - Oropharyngeal pain [Unknown]

NARRATIVE: CASE EVENT DATE: 20211001
